FAERS Safety Report 23251720 (Version 1)
Quarter: 2023Q4

REPORT INFORMATION
  Report Type: Spontaneous
  Country: US (occurrence: None)
  Receive Date: 20231201
  Receipt Date: 20231201
  Transmission Date: 20240109
  Serious: Yes (Hospitalization)
  Sender: FDA-Public Use
  Company Number: None

PATIENT
  Age: 64 Year
  Sex: Female
  Weight: 45 kg

DRUGS (1)
  1. ROCEPHIN [Suspect]
     Active Substance: CEFTRIAXONE SODIUM
     Indication: Lower respiratory tract infection
     Dosage: OTHER FREQUENCY : EVERY TREATMENT;?
     Route: 041
     Dates: start: 20231129, end: 20231129

REACTIONS (4)
  - Pruritus [None]
  - Erythema [None]
  - Swelling face [None]
  - Drug hypersensitivity [None]

NARRATIVE: CASE EVENT DATE: 20231129
